FAERS Safety Report 21033868 (Version 1)
Quarter: 2022Q2

REPORT INFORMATION
  Report Type: Spontaneous
  Country: US (occurrence: None)
  Receive Date: 20220630
  Receipt Date: 20220630
  Transmission Date: 20220720
  Serious: Yes (Other)
  Sender: FDA-Public Use
  Company Number: None

PATIENT
  Sex: Male

DRUGS (1)
  1. INGREZZA [Suspect]
     Active Substance: VALBENAZINE
     Indication: Dystonia
     Route: 048
     Dates: start: 20211222

REACTIONS (6)
  - Therapy interrupted [None]
  - Product distribution issue [None]
  - Eye disorder [None]
  - Anxiety [None]
  - Suicidal ideation [None]
  - Dyskinesia [None]
